FAERS Safety Report 5151592-9 (Version None)
Quarter: 2006Q4

REPORT INFORMATION
  Report Type: 
  Country: None (occurrence: None)
  Receive Date: 20061115
  Receipt Date: 20051018
  Transmission Date: 20070319
  Serious: No
  Sender: FDA-Public Use
  Company Number: US-BRISTOL-MYERS SQUIBB COMPANY-13149901

PATIENT
  Age: 34 Year
  Sex: Male

DRUGS (2)
  1. SUSTIVA [Suspect]
     Indication: ACQUIRED IMMUNODEFICIENCY SYNDROME
  2. TRUVADA [Concomitant]

REACTIONS (1)
  - RASH [None]
